FAERS Safety Report 12052035 (Version 1)
Quarter: 2016Q1

REPORT INFORMATION
  Report Type: Spontaneous
  Country: JP (occurrence: JP)
  Receive Date: 20160209
  Receipt Date: 20160209
  Transmission Date: 20160526
  Serious: Yes (Life-Threatening, Other)
  Sender: FDA-Public Use
  Company Number: JP-CONCORDIA PHARMACEUTICALS INC.-CO-PL-JP-2015-392

PATIENT
  Sex: Female

DRUGS (6)
  1. PRAVASTATIN [Concomitant]
     Active Substance: PRAVASTATIN\PRAVASTATIN SODIUM
  2. MARZULENE [Concomitant]
     Active Substance: SODIUM GUALENATE
  3. PLAQUENIL [Suspect]
     Active Substance: HYDROXYCHLOROQUINE SULFATE
     Indication: SYSTEMIC LUPUS ERYTHEMATOSUS
     Dosage: 1 OR 2 TABLETS DAILY ALTERNATELY
     Route: 048
     Dates: start: 20151026, end: 20151112
  4. PREDONINE [Concomitant]
     Active Substance: PREDNISOLONE\PREDNISOLONE ACETATE\PREDNISOLONE SODIUM SUCCINATE
     Dates: start: 20151113
  5. DEPAS [Concomitant]
     Active Substance: ETIZOLAM
  6. THYRADIN [Concomitant]
     Active Substance: LEVOTHYROXINE

REACTIONS (4)
  - Condition aggravated [Recovering/Resolving]
  - Pruritus [Recovering/Resolving]
  - Systemic lupus erythematosus [Recovering/Resolving]
  - Drug eruption [Recovering/Resolving]

NARRATIVE: CASE EVENT DATE: 20151109
